FAERS Safety Report 24865309 (Version 1)
Quarter: 2025Q1

REPORT INFORMATION
  Report Type: Report from Study
  Country: KR (occurrence: KR)
  Receive Date: 20250121
  Receipt Date: 20250121
  Transmission Date: 20250409
  Serious: Yes (Life-Threatening, Hospitalization)
  Sender: CELLTRION
  Company Number: KR-CELLTRION INC.-2025KR001614

PATIENT

DRUGS (25)
  1. CT-P16 [Suspect]
     Active Substance: CT-P16
     Indication: Ovarian cancer
     Route: 042
     Dates: start: 20241202, end: 20241202
  2. PACLITAXEL [Suspect]
     Active Substance: PACLITAXEL
     Indication: Chemotherapy
     Dates: start: 20241202, end: 20241202
  3. PACLITAXEL [Suspect]
     Active Substance: PACLITAXEL
     Indication: Chemotherapy
     Dates: start: 20241202, end: 20241202
  4. CARBOPLATIN [Suspect]
     Active Substance: CARBOPLATIN
     Indication: Chemotherapy
     Dates: start: 20241202, end: 20241202
  5. SODIUM CHLORIDE [Concomitant]
     Active Substance: SODIUM CHLORIDE
     Route: 042
     Dates: start: 20241202, end: 20241202
  6. SODIUM CHLORIDE [Concomitant]
     Active Substance: SODIUM CHLORIDE
     Route: 042
     Dates: start: 20241202, end: 20241202
  7. EMEND (FOSAPREPITANT DIMEGLUMINE) [Concomitant]
     Active Substance: FOSAPREPITANT DIMEGLUMINE
     Route: 042
     Dates: start: 20241202, end: 20241202
  8. SODIUM CHLORIDE [Concomitant]
     Active Substance: SODIUM CHLORIDE
     Route: 042
     Dates: start: 20241202, end: 20241202
  9. TAGAMET [Concomitant]
     Active Substance: CIMETIDINE
     Route: 042
     Dates: start: 20241202, end: 20241202
  10. DEXTROSE [Concomitant]
     Active Substance: DEXTROSE MONOHYDRATE
     Route: 042
     Dates: start: 20241202, end: 20241202
  11. DEXAMETHASONE SODIUM PHOSPHATE [Concomitant]
     Active Substance: DEXAMETHASONE SODIUM PHOSPHATE
     Route: 042
     Dates: start: 20241202, end: 20241202
  12. PENIRAMIN [Concomitant]
     Route: 042
     Dates: start: 20241202, end: 20241202
  13. PALOSET [Concomitant]
     Route: 042
     Dates: start: 20241202, end: 20241202
  14. TRESIBA [Concomitant]
     Active Substance: INSULIN DEGLUDEC
     Indication: Type 2 diabetes mellitus
     Route: 058
     Dates: start: 20230605
  15. EXFORGE [Concomitant]
     Active Substance: AMLODIPINE BESYLATE\VALSARTAN
     Indication: Hypertension
     Route: 048
  16. DAPAGLIFLOZIN [Concomitant]
     Active Substance: DAPAGLIFLOZIN
     Indication: Type 2 diabetes mellitus
     Route: 048
     Dates: start: 20230605
  17. RESOTRON [Concomitant]
     Indication: Constipation
     Route: 048
  18. YUHAN METFORMIN XR [Concomitant]
     Indication: Type 2 diabetes mellitus
     Route: 048
     Dates: start: 20230605
  19. GASTER [Concomitant]
     Active Substance: FAMOTIDINE
     Indication: Prophylaxis
     Route: 048
  20. SYMBICORT [Concomitant]
     Active Substance: BUDESONIDE\FORMOTEROL FUMARATE DIHYDRATE
     Indication: Asthma
     Route: 048
  21. VENITOL [Concomitant]
     Indication: Deep vein thrombosis
     Route: 048
     Dates: start: 2024
  22. NEURONTIN [Concomitant]
     Active Substance: GABAPENTIN
     Indication: Deep vein thrombosis
     Route: 048
     Dates: start: 2024
  23. ENTELON [Concomitant]
     Indication: Lymphoedema
     Route: 048
     Dates: start: 2024
  24. DEXAMETHASONE [Concomitant]
     Active Substance: DEXAMETHASONE
     Indication: Lymphoedema
     Route: 048
     Dates: start: 20241203, end: 20241204
  25. COMBIFLEX [ALANINE;ARGININE;CALCIUM HYDROXIDE;GLUCOSE MONOHYDRATE;GLYC [Concomitant]
     Indication: Prophylaxis
     Route: 042
     Dates: start: 20241203

REACTIONS (2)
  - Mental status changes [Recovered/Resolved]
  - Pyrexia [Recovered/Resolved]

NARRATIVE: CASE EVENT DATE: 20241208
